FAERS Safety Report 14985479 (Version 1)
Quarter: 2018Q2

REPORT INFORMATION
  Report Type: Spontaneous
  Country: DE (occurrence: DE)
  Receive Date: 20180607
  Receipt Date: 20180607
  Transmission Date: 20180711
  Serious: Yes (Hospitalization)
  Sender: FDA-Public Use
  Company Number: DE-TEVA-2018-DE-902902

PATIENT
  Age: 77 Year
  Sex: Female

DRUGS (6)
  1. ACETYLSALICYLIC ACID [Suspect]
     Active Substance: ASPIRIN
     Dosage: PAUSED
  2. ENALAPRIL [Concomitant]
     Active Substance: ENALAPRIL
     Dosage: 1-0-1-0
  3. FOLINIC ACID [Concomitant]
     Active Substance: LEUCOVORIN
     Dosage: 5 MILLIGRAM DAILY; 1-0-0-0
  4. DIGITOXIN [Concomitant]
     Active Substance: DIGITOXIN
     Dosage: .07 MILLIGRAM DAILY; 1-0-0-0
  5. TORASEMID [Concomitant]
     Active Substance: TORSEMIDE
     Dosage: 5 MILLIGRAM DAILY; 1-0-0-0
  6. RISPERIDONE. [Suspect]
     Active Substance: RISPERIDONE
     Dosage: 0-1-1-0
     Route: 065

REACTIONS (2)
  - Personality change [Unknown]
  - Balance disorder [Unknown]
